FAERS Safety Report 4412013-4 (Version None)
Quarter: 2004Q3

REPORT INFORMATION
  Report Type: 
  Country: None (occurrence: None)
  Receive Date: 20040729
  Receipt Date: 20040729
  Transmission Date: 20050211
  Serious: Yes (Other)
  Sender: FDA-Public Use
  Company Number: None

PATIENT
  Age: 57 Year
  Sex: Female
  Weight: 83.9154 kg

DRUGS (2)
  1. TOBRADEX [Suspect]
     Indication: BLEPHARITIS
     Dosage: 1 DROP 4 TIMES A DAY OPHTHALMIC
     Route: 047
     Dates: start: 20040515, end: 20040519
  2. ARTIFICIAL TEARS [Concomitant]

REACTIONS (3)
  - SKIN DISCOMFORT [None]
  - SKIN TIGHTNESS [None]
  - SOFT TISSUE DISORDER [None]
